FAERS Safety Report 23338988 (Version 3)
Quarter: 2024Q1

REPORT INFORMATION
  Report Type: Report from Study
  Country: IL (occurrence: IL)
  Receive Date: 20231226
  Receipt Date: 20240118
  Transmission Date: 20240410
  Serious: No
  Sender: FDA-Public Use
  Company Number: IL-Merck Healthcare KGaA-2023495978

PATIENT
  Age: 67 Year
  Sex: Female

DRUGS (3)
  1. EUTHYROX [Suspect]
     Active Substance: LEVOTHYROXINE SODIUM
     Indication: Product used for unknown indication
     Dosage: STARTED AROUND THE AGE OF 40, FOR THE PAST 27 YEARS.
  2. RAMIPRIL [Concomitant]
     Active Substance: RAMIPRIL
     Indication: Product used for unknown indication
  3. CARDILOCK [Concomitant]
     Indication: Product used for unknown indication

REACTIONS (2)
  - Hepatic steatosis [Unknown]
  - Varicose vein [Unknown]
